APPROVED DRUG PRODUCT: IMIPRAMINE PAMOATE
Active Ingredient: IMIPRAMINE PAMOATE
Strength: EQ 75MG HYDROCHLORIDE
Dosage Form/Route: CAPSULE;ORAL
Application: A202338 | Product #001
Applicant: RISING PHARMA HOLDINGS INC
Approved: Jun 28, 2013 | RLD: No | RS: No | Type: DISCN